FAERS Safety Report 8953031 (Version 1)
Quarter: 2012Q4

REPORT INFORMATION
  Report Type: 
  Country: CA (occurrence: CA)
  Receive Date: 20121205
  Receipt Date: 20121205
  Transmission Date: 20130627
  Serious: Yes (Hospitalization)
  Sender: FDA-Public Use
  Company Number: CA-ROCHE-GNE285785

PATIENT
  Sex: Female

DRUGS (1)
  1. XOLAIR [Suspect]
     Indication: ASTHMA
     Dosage: 300 mg, UNK
     Route: 058
     Dates: start: 20090223

REACTIONS (5)
  - Asthma [Unknown]
  - Productive cough [Unknown]
  - Heart rate increased [Unknown]
  - Pulmonary congestion [Unknown]
  - Cough [Unknown]
